FAERS Safety Report 7946191-7 (Version None)
Quarter: 2011Q4

REPORT INFORMATION
  Report Type: 
  Country: None (occurrence: None)
  Receive Date: 20111129
  Receipt Date: 20111123
  Transmission Date: 20120403
  Serious: Yes (Hospitalization)
  Sender: FDA-Public Use
  Company Number: US-BRISTOL-MYERS SQUIBB COMPANY-16245425

PATIENT
  Age: 30 Year
  Sex: Male
  Weight: 105 kg

DRUGS (1)
  1. IPILIMUMAB [Suspect]
     Indication: MALIGNANT MELANOMA
     Dosage: LAST DOSE:08NOV11 10MG/KG OVER 90MIN, Q12 WEEKS ON 24,36,48,60. NO OF COURSE 1;
     Dates: start: 20111108

REACTIONS (1)
  - PYREXIA [None]
